FAERS Safety Report 23798988 (Version 1)
Quarter: 2024Q2

REPORT INFORMATION
  Report Type: Spontaneous
  Country: US (occurrence: None)
  Receive Date: 20240427
  Receipt Date: 20240427
  Transmission Date: 20240715
  Serious: No
  Sender: FDA-Public Use
  Company Number: None

PATIENT
  Age: 68 Year
  Sex: Male
  Weight: 118 kg

DRUGS (1)
  1. FERUMOXYTOL [Suspect]
     Active Substance: FERUMOXYTOL
     Indication: Anaemia
     Dates: start: 20230308, end: 20230308

REACTIONS (4)
  - Dyspnoea [None]
  - Nausea [None]
  - Respiratory depression [None]
  - Vomiting [None]

NARRATIVE: CASE EVENT DATE: 20230308
